FAERS Safety Report 7746977-8 (Version None)
Quarter: 2011Q3

REPORT INFORMATION
  Report Type: 
  Country: None (occurrence: None)
  Receive Date: 20110913
  Receipt Date: 20110906
  Transmission Date: 20111222
  Serious: Yes (Hospitalization)
  Sender: FDA-Public Use
  Company Number: PHHY2011FR80131

PATIENT
  Age: 83 Year
  Sex: Male

DRUGS (2)
  1. STALEVO 100 [Suspect]
     Indication: PARKINSON'S DISEASE
     Dosage: 200/50/12.5 MG,  QD
     Route: 048
  2. EXELON [Concomitant]
     Dosage: 9.5 MG/24H

REACTIONS (4)
  - DEHYDRATION [None]
  - VOMITING [None]
  - URINARY RETENTION [None]
  - DIARRHOEA [None]
